FAERS Safety Report 12443053 (Version 1)
Quarter: 2016Q2

REPORT INFORMATION
  Report Type: Spontaneous
  Country: US (occurrence: None)
  Receive Date: 20160606
  Receipt Date: 20160606
  Transmission Date: 20160815
  Serious: Yes (Other)
  Sender: FDA-Public Use
  Company Number: None

PATIENT
  Age: 50 Year
  Sex: Male
  Weight: 90.72 kg

DRUGS (3)
  1. SYNTHROID [Concomitant]
     Active Substance: LEVOTHYROXINE SODIUM
  2. 2.25% SELENIUM SULFIDE SHAMPOO, 180 ML [Suspect]
     Active Substance: SELENIUM SULFIDE
     Indication: PRURITUS
     Dosage: 1 BOTTLE  AS NEEDED  APPLIED TO A SURFACE, USUALLY THE SKIN
  3. GLIMEPERIDE [Concomitant]
     Active Substance: GLIMEPIRIDE

REACTIONS (1)
  - Insomnia [None]

NARRATIVE: CASE EVENT DATE: 20160603
